FAERS Safety Report 25304800 (Version 1)
Quarter: 2025Q2

REPORT INFORMATION
  Report Type: Spontaneous
  Country: FR (occurrence: FR)
  Receive Date: 20250513
  Receipt Date: 20250513
  Transmission Date: 20250717
  Serious: Yes (Other)
  Sender: TAKEDA
  Company Number: FR-TAKEDA-2024TUS003887

PATIENT
  Sex: Female

DRUGS (6)
  1. ENTYVIO [Suspect]
     Active Substance: VEDOLIZUMAB
     Indication: Colitis ulcerative
  2. ENTYVIO [Suspect]
     Active Substance: VEDOLIZUMAB
     Dosage: UNK UNK, Q2WEEKS
     Dates: start: 202310
  3. ENTYVIO [Suspect]
     Active Substance: VEDOLIZUMAB
     Dosage: 108 MILLIGRAM, 1/WEEK
  4. METHOTREXATE [Concomitant]
     Active Substance: METHOTREXATE
  5. FOLIC ACID [Concomitant]
     Active Substance: FOLIC ACID
  6. Fivasa [Concomitant]

REACTIONS (2)
  - Colitis ulcerative [Unknown]
  - Injection site reaction [Recovered/Resolved]
